FAERS Safety Report 23629060 (Version 1)
Quarter: 2024Q1

REPORT INFORMATION
  Report Type: Spontaneous
  Country: US (occurrence: US)
  Receive Date: 20240313
  Receipt Date: 20240313
  Transmission Date: 20240410
  Serious: No
  Sender: FDA-Public Use
  Company Number: US-BAUSCH-BL-2024-003862

PATIENT
  Age: 34 Year
  Sex: Male

DRUGS (3)
  1. ELIDEL [Suspect]
     Active Substance: PIMECROLIMUS
     Indication: Psoriasis
     Route: 065
  2. ELIDEL [Suspect]
     Active Substance: PIMECROLIMUS
     Indication: Product use in unapproved indication
  3. DUOBRII [Suspect]
     Active Substance: HALOBETASOL PROPIONATE\TAZAROTENE
     Indication: Psoriasis
     Dosage: 0.01/0.045%
     Route: 065

REACTIONS (3)
  - Drug ineffective [Unknown]
  - Drug ineffective for unapproved indication [Unknown]
  - Product use in unapproved indication [Unknown]
